FAERS Safety Report 14232033 (Version 1)
Quarter: 2017Q4

REPORT INFORMATION
  Report Type: Spontaneous
  Country: US (occurrence: US)
  Receive Date: 20171128
  Receipt Date: 20171128
  Transmission Date: 20180321
  Serious: No
  Sender: FDA-Public Use
  Company Number: US-LEADIANT BIOSCIENCES INC-2016STPI000938

PATIENT
  Sex: Female

DRUGS (1)
  1. MATULANE [Suspect]
     Active Substance: PROCARBAZINE HYDROCHLORIDE
     Indication: HODGKIN^S DISEASE STAGE IV
     Dosage: 50 MG, 3 CAPSULES QD FOR 7 DAYS FOLLOWED BY 7 DAYS OFF
     Route: 048
     Dates: start: 20161001

REACTIONS (1)
  - Nausea [Not Recovered/Not Resolved]
